FAERS Safety Report 20855514 (Version 4)
Quarter: 2022Q3

REPORT INFORMATION
  Report Type: Spontaneous
  Country: PL (occurrence: None)
  Receive Date: 20220520
  Receipt Date: 20220713
  Transmission Date: 20221027
  Serious: Yes (Other)
  Sender: FDA-Public Use
  Company Number: 2022A180994

PATIENT
  Age: 76 Year
  Sex: Female
  Weight: 68 kg

DRUGS (20)
  1. FULVESTRANT [Suspect]
     Active Substance: FULVESTRANT
     Indication: Metastases to bone
     Dosage: UNK
     Route: 065
     Dates: start: 20211230, end: 20220330
  2. FULVESTRANT [Suspect]
     Active Substance: FULVESTRANT
     Indication: Invasive lobular breast carcinoma
     Dosage: UNK
     Route: 065
     Dates: start: 20211230, end: 20220330
  3. FULVESTRANT [Suspect]
     Active Substance: FULVESTRANT
     Indication: Metastases to bone
     Dosage: 500 MG, QMO (FASLODEX)
     Route: 030
     Dates: start: 20211230
  4. FULVESTRANT [Suspect]
     Active Substance: FULVESTRANT
     Indication: Invasive lobular breast carcinoma
     Dosage: 500 MG, QMO (FASLODEX)
     Route: 030
     Dates: start: 20211230
  5. TAMOXIFEN [Suspect]
     Active Substance: TAMOXIFEN
     Indication: Invasive lobular breast carcinoma
     Dosage: UNK
     Route: 065
     Dates: start: 20180606, end: 202112
  6. KISQALI [Suspect]
     Active Substance: RIBOCICLIB
     Indication: Invasive lobular breast carcinoma
     Dosage: 600 MG, QD
     Route: 065
     Dates: start: 20211230
  7. KISQALI [Suspect]
     Active Substance: RIBOCICLIB
     Indication: Metastases to bone
     Dosage: 600 MG, QD
     Route: 065
     Dates: start: 20211230
  8. KISQALI [Suspect]
     Active Substance: RIBOCICLIB
     Indication: Invasive lobular breast carcinoma
     Dosage: 400 MG, QD (FROM 3RD CYCLE)
     Route: 065
  9. KISQALI [Suspect]
     Active Substance: RIBOCICLIB
     Indication: Metastases to bone
     Dosage: 400 MG, QD (FROM 3RD CYCLE)
     Route: 065
  10. KISQALI [Suspect]
     Active Substance: RIBOCICLIB
     Indication: Invasive lobular breast carcinoma
     Dosage: UNK
     Route: 065
     Dates: start: 20211230, end: 20220330
  11. KISQALI [Suspect]
     Active Substance: RIBOCICLIB
     Indication: Metastases to bone
     Dosage: UNK
     Route: 065
     Dates: start: 20211230, end: 20220330
  12. KISQALI [Suspect]
     Active Substance: RIBOCICLIB
     Indication: Invasive lobular breast carcinoma
     Dosage: 400 MG, QD (200 MG, 2 TABLETS)
     Route: 065
     Dates: start: 20220310
  13. KISQALI [Suspect]
     Active Substance: RIBOCICLIB
     Indication: Metastases to bone
     Dosage: 400 MG, QD (200 MG, 2 TABLETS)
     Route: 065
     Dates: start: 20220310
  14. METFORMIN HYDROCHLORIDE [Concomitant]
     Active Substance: METFORMIN HYDROCHLORIDE
     Indication: Product used for unknown indication
     Dosage: UNK, BID
     Route: 065
  15. DOXANORM [Concomitant]
     Indication: Product used for unknown indication
     Dosage: 2 MG, BID (4 MG, 1/2-0-1/2)
     Route: 065
  16. VALTAP HCT [Concomitant]
     Indication: Product used for unknown indication
     Dosage: UNK, QD (160-12,5 MG)
     Route: 065
  17. GENSULIN M30 [Concomitant]
     Indication: Product used for unknown indication
     Dosage: UNK (30-0-20 U)
     Route: 065
  18. METOPROLOL SUCCINATE [Concomitant]
     Active Substance: METOPROLOL SUCCINATE
     Indication: Product used for unknown indication
     Dosage: UNK, QD (47,5 MG)
     Route: 065
  19. AMLODIPINE BESYLATE [Concomitant]
     Active Substance: AMLODIPINE BESYLATE
     Indication: Product used for unknown indication
     Route: 065
  20. VINPOCETINE [Concomitant]
     Active Substance: VINPOCETINE
     Indication: Product used for unknown indication
     Dosage: 10 MG, BID (CAVINTON FORTE)
     Route: 065

REACTIONS (3)
  - Metastases to bone [Recovering/Resolving]
  - Metastases to liver [Unknown]
  - Neutropenia [Recovered/Resolved]

NARRATIVE: CASE EVENT DATE: 20211213
